FAERS Safety Report 6875293-1 (Version None)
Quarter: 2010Q2

REPORT INFORMATION
  Report Type: 
  Country: None (occurrence: None)
  Receive Date: 20100610
  Receipt Date: 20100312
  Transmission Date: 20101027
  Serious: No
  Sender: FDA-Public Use
  Company Number: 2010SP016181

PATIENT
  Age: 33 Year
  Sex: Female

DRUGS (1)
  1. SAPHRIS [Suspect]
     Indication: SCHIZOAFFECTIVE DISORDER
     Dosage: 10 MG;QD

REACTIONS (1)
  - MUSCLE TIGHTNESS [None]
